FAERS Safety Report 9410780 (Version 1)
Quarter: 2013Q3

REPORT INFORMATION
  Report Type: Report from Study
  Country: US (occurrence: US)
  Receive Date: 20130719
  Receipt Date: 20130719
  Transmission Date: 20140515
  Serious: Yes (Death, Other)
  Sender: FDA-Public Use
  Company Number: US-US-EMD SERONO, INC.-7225172

PATIENT
  Sex: Male

DRUGS (2)
  1. NOVANTRONE [Suspect]
     Indication: MULTIPLE SCLEROSIS
     Dates: end: 200608
  2. REBIF [Suspect]
     Indication: MULTIPLE SCLEROSIS
     Dates: start: 2006, end: 200709

REACTIONS (4)
  - Cardiac failure congestive [Fatal]
  - Pleural effusion [Recovered/Resolved]
  - Hepatic failure [Unknown]
  - Ejection fraction decreased [Not Recovered/Not Resolved]
